FAERS Safety Report 9106030 (Version 1)
Quarter: 2013Q1

REPORT INFORMATION
  Report Type: Spontaneous
  Country: CO (occurrence: CO)
  Receive Date: 20130220
  Receipt Date: 20130220
  Transmission Date: 20140127
  Serious: Yes (Hospitalization)
  Sender: FDA-Public Use
  Company Number: CO-PFIZER INC-2013061391

PATIENT
  Age: 15 Year
  Sex: Male

DRUGS (1)
  1. GENOTROPIN [Suspect]
     Indication: FAILURE TO THRIVE
     Dosage: 1.6 MG, 6X/WEEK
     Route: 058
     Dates: end: 20121128

REACTIONS (2)
  - Intestinal obstruction [Not Recovered/Not Resolved]
  - Drug administration error [Unknown]
